FAERS Safety Report 7817680-0 (Version None)
Quarter: 2011Q4

REPORT INFORMATION
  Report Type: 
  Country: None (occurrence: None)
  Receive Date: 20111017
  Receipt Date: 20111007
  Transmission Date: 20120403
  Serious: Yes (Other)
  Sender: FDA-Public Use
  Company Number: US-BAYER-2011-068013

PATIENT
  Age: 23 Year
  Sex: Female
  Weight: 54.422 kg

DRUGS (1)
  1. MIRENA [Suspect]
     Indication: CONTRACEPTION
     Dosage: 20 MCG/24HR, CONT
     Route: 015
     Dates: start: 20110630, end: 20110630

REACTIONS (2)
  - PROCEDURAL PAIN [None]
  - DEVICE DISLOCATION [None]
